FAERS Safety Report 6408636-3 (Version None)
Quarter: 2009Q4

REPORT INFORMATION
  Report Type: 
  Country: None (occurrence: None)
  Receive Date: 20091019
  Receipt Date: 20091006
  Transmission Date: 20100525
  Serious: Yes (Life-Threatening)
  Sender: FDA-Public Use
  Company Number: 1-20401293

PATIENT
  Age: 64 Year
  Sex: Male

DRUGS (6)
  1. FENTANYL TRANSDERMAL SYSTEM [Suspect]
  2. PENTOTHAL-NATRIUM (THIOPENTAL SODIUM) [Suspect]
  3. PAVULON [Suspect]
  4. CHLROHEXIDINE [Concomitant]
  5. CEFALOTIN [Concomitant]
  6. DIAZEPAM [Concomitant]

REACTIONS (2)
  - BLOOD PRESSURE DECREASED [None]
  - BRONCHOSPASM [None]
